FAERS Safety Report 9850594 (Version 1)
Quarter: 2013Q4

REPORT INFORMATION
  Report Type: Spontaneous
  Country: US (occurrence: None)
  Receive Date: 20131127
  Receipt Date: 20131127
  Transmission Date: 20140711
  Serious: No
  Sender: FDA-Public Use
  Company Number: 224017LEO

PATIENT
  Sex: Female

DRUGS (1)
  1. PICATO [Suspect]
     Indication: ACTINIC KERATOSIS
     Dates: start: 20130921, end: 20130923

REACTIONS (9)
  - Application site pain [None]
  - Application site pain [None]
  - Application site vesicles [None]
  - Application site discomfort [None]
  - Sleep disorder [None]
  - Decreased appetite [None]
  - Headache [None]
  - Drug administered at inappropriate site [None]
  - Incorrect dose administered [None]
